FAERS Safety Report 11792392 (Version 3)
Quarter: 2015Q4

REPORT INFORMATION
  Report Type: Spontaneous
  Country: IT (occurrence: IT)
  Receive Date: 20151202
  Receipt Date: 20151222
  Transmission Date: 20160305
  Serious: Yes (Hospitalization, Other)
  Sender: FDA-Public Use
  Company Number: IT-009507513-1511ITA014225

PATIENT
  Age: 40 Year
  Sex: Female

DRUGS (8)
  1. LENTOGEST [Suspect]
     Active Substance: HYDROXYPROGESTERONE CAPROATE
     Indication: ARTIFICIAL INSEMINATION BY PARTNER
     Dosage: 1 DOSE UNIT, CYCLIC
     Route: 030
     Dates: start: 20150729
  2. ENANTONE LP [Concomitant]
     Active Substance: LEUPROLIDE ACETATE
     Dosage: UNK
     Dates: start: 20150626, end: 20150626
  3. GONASI HP [Suspect]
     Active Substance: GONADOTROPHIN, CHORIONIC
     Indication: ARTIFICIAL INSEMINATION BY PARTNER
     Dosage: TOTAL: 1000 IU (LOWER THAN 1000)
     Dates: start: 20150725
  4. ASPIRIN. [Concomitant]
     Active Substance: ASPIRIN
  5. PAFINUR [Concomitant]
     Indication: URTICARIA
     Dosage: UNK
     Dates: start: 20151010, end: 20151014
  6. PROGEFFIK [Suspect]
     Active Substance: PROGESTERONE
     Indication: ARTIFICIAL INSEMINATION BY PARTNER
     Dosage: UNK
     Dates: start: 20150729
  7. FOLLITROPIN BETA [Suspect]
     Active Substance: FOLLITROPIN
     Indication: ARTIFICIAL INSEMINATION BY PARTNER
     Dosage: 225 IU (LOWER THAN 1000)
     Dates: start: 20150710
  8. BENTELAN [Suspect]
     Active Substance: BETAMETHASONE SODIUM PHOSPHATE
     Indication: URTICARIA
     Dosage: TOTAL: 32MG
     Dates: start: 20151010

REACTIONS (1)
  - Pancreatitis acute [Recovered/Resolved]

NARRATIVE: CASE EVENT DATE: 20151022
